FAERS Safety Report 15234661 (Version 1)
Quarter: 2018Q3

REPORT INFORMATION
  Report Type: Report from Study
  Country: IR (occurrence: IR)
  Receive Date: 20180803
  Receipt Date: 20180803
  Transmission Date: 20181010
  Serious: Yes (Other)
  Sender: FDA-Public Use
  Company Number: IR-SUN PHARMACEUTICAL INDUSTRIES LTD-2018RR-180373

PATIENT
  Sex: Female
  Weight: 3.45 kg

DRUGS (1)
  1. LETROZOLE. [Suspect]
     Active Substance: LETROZOLE
     Indication: PRODUCT USED FOR UNKNOWN INDICATION
     Route: 064

REACTIONS (2)
  - Pelvi-ureteric obstruction [Unknown]
  - Foetal exposure during pregnancy [Unknown]
